FAERS Safety Report 7453265-6 (Version None)
Quarter: 2011Q2

REPORT INFORMATION
  Report Type: 
  Country: None (occurrence: None)
  Receive Date: 20110502
  Receipt Date: 20101203
  Transmission Date: 20111010
  Serious: No
  Sender: FDA-Public Use
  Company Number: US-ASTRAZENECA-2010SE57439

PATIENT
  Age: 89 Year
  Sex: Female
  Weight: 62.6 kg

DRUGS (5)
  1. NEXIUM [Suspect]
     Indication: ABDOMINAL DISTENSION
     Route: 048
     Dates: start: 20101122, end: 20101125
  2. SIMVASTATIN [Concomitant]
     Indication: HYPERCHOLESTEROLAEMIA
  3. LOVOXYL [Concomitant]
     Indication: THYROID DISORDER
  4. NEXIUM [Suspect]
     Indication: FLATULENCE
     Route: 048
     Dates: start: 20101122, end: 20101125
  5. VITAMIN TAB [Concomitant]
     Indication: GENERAL PHYSICAL HEALTH DETERIORATION

REACTIONS (3)
  - DRUG DOSE OMISSION [None]
  - DIARRHOEA [None]
  - NAUSEA [None]
